FAERS Safety Report 8736156 (Version 2)
Quarter: 2012Q4

REPORT INFORMATION
  Report Type: Spontaneous
  Country: US (occurrence: None)
  Receive Date: 20120803
  Receipt Date: 20120814
  Transmission Date: 20130627
  Serious: Yes (Death, Hospitalization)
  Sender: FDA-Public Use
  Company Number: UTC-020357

PATIENT
  Age: 63 Year
  Sex: Female
  Weight: 56.4 kg

DRUGS (3)
  1. TYVASO [Suspect]
     Indication: PULMONARY HYPERTENSION SECONDARY
     Dosage: 18-54 MAY. (4 IN 1 D),INHALATION
     Route: 055
     Dates: start: 20111109
  2. TYVASO [Suspect]
  3. ASPIRIN [Concomitant]

REACTIONS (6)
  - Oedema peripheral [None]
  - Wound [None]
  - Wound secretion [None]
  - Impaired healing [None]
  - Pain in extremity [None]
  - Right ventricular failure [None]
